FAERS Safety Report 17630899 (Version 3)
Quarter: 2021Q2

REPORT INFORMATION
  Report Type: Report from Study
  Country: CA (occurrence: CA)
  Receive Date: 20200406
  Receipt Date: 20210423
  Transmission Date: 20210716
  Serious: Yes (Life-Threatening, Hospitalization)
  Sender: FDA-Public Use
  Company Number: CA-JNJFOC-20200343478

PATIENT
  Age: 72 Year
  Sex: Female
  Weight: 81 kg

DRUGS (14)
  1. TREMFYA [Suspect]
     Active Substance: GUSELKUMAB
     Route: 058
  2. MOTILIUM [Concomitant]
     Active Substance: DOMPERIDONE
  3. NADOLOL. [Concomitant]
     Active Substance: NADOLOL
  4. TREMFYA [Suspect]
     Active Substance: GUSELKUMAB
     Indication: PSORIASIS
     Route: 058
     Dates: start: 20191227, end: 20200123
  5. ASA [Concomitant]
     Active Substance: ASPIRIN
  6. INDAPAMIDE. [Concomitant]
     Active Substance: INDAPAMIDE
  7. DEXILANT [Concomitant]
     Active Substance: DEXLANSOPRAZOLE
  8. METFORMIN [Concomitant]
     Active Substance: METFORMIN HYDROCHLORIDE
  9. JARDIANCE [Concomitant]
     Active Substance: EMPAGLIFLOZIN
  10. LASIX [Concomitant]
     Active Substance: FUROSEMIDE
  11. FOSINOPRIL [Concomitant]
     Active Substance: FOSINOPRIL
  12. DIAMICRON [Concomitant]
     Active Substance: GLICLAZIDE
  13. CRESTOR [Concomitant]
     Active Substance: ROSUVASTATIN CALCIUM
  14. MIRAPEX [Concomitant]
     Active Substance: PRAMIPEXOLE DIHYDROCHLORIDE

REACTIONS (1)
  - Pneumonia streptococcal [Recovered/Resolved]

NARRATIVE: CASE EVENT DATE: 20200307
